FAERS Safety Report 9630115 (Version 1)
Quarter: 2013Q4

REPORT INFORMATION
  Report Type: Spontaneous
  Country: IN (occurrence: IN)
  Receive Date: 20131017
  Receipt Date: 20131017
  Transmission Date: 20140711
  Serious: Yes (Hospitalization)
  Sender: FDA-Public Use
  Company Number: IN-MYLANLABS-2013S1022586

PATIENT
  Age: 65 Year
  Sex: Male

DRUGS (4)
  1. FLUOROURACIL [Suspect]
     Indication: GASTROOESOPHAGEAL CANCER
     Route: 040
  2. CISPLATIN [Concomitant]
     Indication: GASTROOESOPHAGEAL CANCER
     Route: 065
  3. FOLINIC ACID [Concomitant]
     Indication: GASTROOESOPHAGEAL CANCER
     Route: 065
  4. ENALAPRIL [Concomitant]
     Indication: HYPERTENSION
     Dosage: 10MG
     Route: 065

REACTIONS (1)
  - Arteriospasm coronary [Recovered/Resolved]
